FAERS Safety Report 8890588 (Version 1)
Quarter: 2012Q4

REPORT INFORMATION
  Report Type: 
  Country: GB (occurrence: GB)
  Receive Date: 20121107
  Receipt Date: 20121107
  Transmission Date: 20130627
  Serious: Yes (Other)
  Sender: FDA-Public Use
  Company Number: PHFR2012GB005336

PATIENT
  Age: 32 Year
  Sex: Male

DRUGS (2)
  1. CLOZARIL [Suspect]
     Indication: SCHIZOPHRENIA
     Dosage: 500 mg, Daily
     Route: 048
     Dates: start: 20060222
  2. SERTRALINE [Concomitant]
     Indication: DEPRESSION
     Dosage: 200 mg, Daily
     Route: 048

REACTIONS (3)
  - Differential white blood cell count abnormal [Not Recovered/Not Resolved]
  - Eosinophil count increased [Unknown]
  - Atypical pneumonia [Recovered/Resolved]
